FAERS Safety Report 26185647 (Version 1)
Quarter: 2025Q4

REPORT INFORMATION
  Report Type: Spontaneous
  Country: US (occurrence: None)
  Receive Date: 20251219
  Receipt Date: 20251219
  Transmission Date: 20260119
  Serious: Yes (Other)
  Sender: FDA-CTU
  Company Number: None

PATIENT
  Age: 64 Year
  Sex: Female

DRUGS (5)
  1. VANCOMYCIN [Suspect]
     Active Substance: VANCOMYCIN
     Indication: Antibiotic prophylaxis
     Route: 041
     Dates: start: 20251215, end: 20251215
  2. acetaminophen PO [Concomitant]
  3. tramadol PO [Concomitant]
  4. FENTANYL [Concomitant]
     Active Substance: FENTANYL
  5. midazolam IV [Concomitant]

REACTIONS (4)
  - Vancomycin infusion reaction [None]
  - Erythema [None]
  - Rash [None]
  - Urticaria [None]

NARRATIVE: CASE EVENT DATE: 20251215
